FAERS Safety Report 6039820-9 (Version None)
Quarter: 2009Q1

REPORT INFORMATION
  Report Type: 
  Country: None (occurrence: None)
  Receive Date: 20090116
  Receipt Date: 20090107
  Transmission Date: 20090719
  Serious: Yes (Hospitalization)
  Sender: FDA-Public Use
  Company Number: GB-JNJFOC-20090101501

PATIENT
  Age: 65 Year
  Sex: Male

DRUGS (5)
  1. REMICADE [Suspect]
     Indication: PSORIASIS
     Route: 042
  2. METHOTREXATE [Concomitant]
     Indication: PSORIASIS
     Route: 048
  3. CARBAMAZEPINE [Concomitant]
     Indication: EPILEPSY
     Route: 048
  4. CYCLOSPORINE [Concomitant]
     Indication: PSORIASIS
     Route: 048
  5. THEOPHYLLINE [Concomitant]
     Indication: CHRONIC OBSTRUCTIVE PULMONARY DISEASE
     Route: 048

REACTIONS (1)
  - GLOMERULONEPHRITIS MEMBRANOUS [None]
